FAERS Safety Report 21690773 (Version 1)
Quarter: 2022Q4

REPORT INFORMATION
  Report Type: Spontaneous
  Country: JP (occurrence: JP)
  Receive Date: 20221207
  Receipt Date: 20221207
  Transmission Date: 20230113
  Serious: Yes (Hospitalization, Disabling, Other)
  Sender: FDA-Public Use
  Company Number: JP-BRISTOL-MYERS SQUIBB COMPANY-2022-130200

PATIENT
  Age: 73 Year
  Sex: Male
  Weight: 62 kg

DRUGS (7)
  1. ELIQUIS [Suspect]
     Active Substance: APIXABAN
     Indication: Cerebrovascular accident prophylaxis
     Route: 048
     Dates: start: 20140503, end: 20221017
  2. NICORANDIL [Concomitant]
     Active Substance: NICORANDIL
     Indication: Prophylaxis
     Route: 048
  3. BENIDIPINE [Concomitant]
     Active Substance: BENIDIPINE
     Indication: Hypertension
     Route: 048
  4. NEXIUM [Concomitant]
     Active Substance: ESOMEPRAZOLE MAGNESIUM
     Indication: Prophylaxis
     Route: 048
     Dates: end: 20221018
  5. ISOSORBIDE DINITRATE [Concomitant]
     Active Substance: ISOSORBIDE DINITRATE
     Indication: Prophylaxis
     Route: 061
  6. HEPARIN SODIUM [Concomitant]
     Active Substance: HEPARIN SODIUM
     Indication: Product used for unknown indication
     Dosage: 12000 UNITS/DAY
     Route: 042
     Dates: start: 20221012, end: 20221013
  7. HEPARIN SODIUM [Concomitant]
     Active Substance: HEPARIN SODIUM
     Dosage: 13200 UNITS/DAY
     Route: 042
     Dates: start: 20221013, end: 20221014

REACTIONS (3)
  - Embolic stroke [Not Recovered/Not Resolved]
  - Ankle fracture [Not Recovered/Not Resolved]
  - Fall [Unknown]

NARRATIVE: CASE EVENT DATE: 20221010
